FAERS Safety Report 9815225 (Version 2)
Quarter: 2014Q3

REPORT INFORMATION
  Report Type: Report from Study
  Country: US (occurrence: US)
  Receive Date: 20140114
  Receipt Date: 20140821
  Transmission Date: 20150326
  Serious: Yes (Other)
  Sender: FDA-Public Use
  Company Number: US-BIOGENIDEC-2014BI001128

PATIENT
  Age: 74 Year
  Sex: Female

DRUGS (10)
  1. TECFIDERA [Suspect]
     Active Substance: DIMETHYL FUMARATE
     Indication: MULTIPLE SCLEROSIS
     Route: 048
     Dates: start: 201305
  2. BACLOFEN. [Concomitant]
     Active Substance: BACLOFEN
  3. ATORVASTATIN [Concomitant]
     Active Substance: ATORVASTATIN
  4. ASA [Concomitant]
     Active Substance: ASPIRIN
  5. OXYBUTYNIN [Concomitant]
     Active Substance: OXYBUTYNIN
  6. ALENOLOL [Concomitant]
  7. TURMERIC [Concomitant]
     Active Substance: TURMERIC
  8. OMEPRAZOLE. [Concomitant]
     Active Substance: OMEPRAZOLE
  9. COQ10 [Concomitant]
     Active Substance: UBIDECARENONE
  10. SERTRALINE [Concomitant]
     Active Substance: SERTRALINE HYDROCHLORIDE

REACTIONS (5)
  - Multiple sclerosis [Unknown]
  - Skin cancer [Recovered/Resolved]
  - Herpes zoster [Recovered/Resolved]
  - Amnesia [Not Recovered/Not Resolved]
  - Arthritis [Not Recovered/Not Resolved]

NARRATIVE: CASE EVENT DATE: 201310
